FAERS Safety Report 7164837-0 (Version None)
Quarter: 2010Q4

REPORT INFORMATION
  Report Type: 
  Country: None (occurrence: None)
  Receive Date: 20101215
  Receipt Date: 20101207
  Transmission Date: 20110411
  Serious: Yes (Hospitalization)
  Sender: FDA-Public Use
  Company Number: US-PFIZER INC-2010166964

PATIENT
  Sex: Female

DRUGS (3)
  1. ALPRAZOLAM [Suspect]
     Indication: ABNORMAL BEHAVIOUR
     Dosage: 0.25 MG, 1X/DAY AT BEDTIME
  2. ALPRAZOLAM [Suspect]
     Indication: INSOMNIA
  3. SYNTHROID [Concomitant]

REACTIONS (1)
  - PNEUMONIA ASPIRATION [None]
